FAERS Safety Report 13763784 (Version 2)
Quarter: 2017Q3

REPORT INFORMATION
  Report Type: Report from Study
  Country: None (occurrence: CA)
  Receive Date: 20170718
  Receipt Date: 20170818
  Transmission Date: 20171127
  Serious: Yes (Hospitalization, Other)
  Sender: FDA-Public Use
  Company Number: CA-ABBVIE-17P-028-2037340-00

PATIENT
  Age: 85 Year
  Sex: Male
  Weight: 54.48 kg

DRUGS (5)
  1. SYNTHROID [Concomitant]
     Active Substance: LEVOTHYROXINE SODIUM
     Indication: PRODUCT USED FOR UNKNOWN INDICATION
  2. QUETIAPINE. [Concomitant]
     Active Substance: QUETIAPINE
     Indication: PRODUCT USED FOR UNKNOWN INDICATION
  3. LUPRON DEPOT [Suspect]
     Active Substance: LEUPROLIDE ACETATE
     Indication: PROSTATE CANCER
     Route: 030
     Dates: start: 201509, end: 20161118
  4. IRON [Concomitant]
     Active Substance: IRON
     Indication: PRODUCT USED FOR UNKNOWN INDICATION
  5. LUPRON DEPOT [Interacting]
     Active Substance: LEUPROLIDE ACETATE
     Route: 030
     Dates: start: 20170707

REACTIONS (7)
  - Neoplasm prostate [Recovering/Resolving]
  - Drug interaction [Unknown]
  - Weight decreased [Not Recovered/Not Resolved]
  - Blood urine present [Recovered/Resolved]
  - Prostate cancer metastatic [Unknown]
  - Pain [Recovered/Resolved]
  - Discomfort [Recovered/Resolved]

NARRATIVE: CASE EVENT DATE: 20170523
